FAERS Safety Report 16854326 (Version 6)
Quarter: 2019Q4

REPORT INFORMATION
  Report Type: Spontaneous
  Country: PL (occurrence: PL)
  Receive Date: 20190926
  Receipt Date: 20191225
  Transmission Date: 20200122
  Serious: Yes (Death, Life-Threatening, Other)
  Sender: FDA-Public Use
  Company Number: PL-AUROBINDO-AUR-APL-2019-060685

PATIENT
  Age: 51 Year
  Sex: Female

DRUGS (10)
  1. TAMOXIFEN [Suspect]
     Active Substance: TAMOXIFEN
     Indication: HORMONE THERAPY
     Dosage: UNK
     Route: 065
  2. IMATINIB. [Interacting]
     Active Substance: IMATINIB MESYLATE
     Indication: MYELOID LEUKAEMIA
     Dosage: UNK
     Route: 065
     Dates: start: 201705
  3. PACLITAXEL. [Interacting]
     Active Substance: PACLITAXEL
     Indication: CHRONIC MYELOID LEUKAEMIA
     Dosage: UNK, EVERY WEEK (EVERY 7 DAYS,  TREATMENT WAS ALTERNATED)
     Route: 065
     Dates: start: 201607, end: 201609
  4. IMATINIB. [Interacting]
     Active Substance: IMATINIB MESYLATE
     Indication: CHRONIC MYELOID LEUKAEMIA
     Dosage: UNK
     Route: 065
     Dates: start: 201601, end: 201609
  5. LETROZOLE. [Suspect]
     Active Substance: LETROZOLE
     Indication: BREAST CANCER
     Dosage: UNK
     Route: 065
  6. VINORELBINE [Suspect]
     Active Substance: VINORELBINE TARTRATE
     Indication: CHRONIC MYELOID LEUKAEMIA
     Dosage: UNK
     Route: 065
     Dates: start: 201710, end: 201804
  7. TAMOXIFEN [Suspect]
     Active Substance: TAMOXIFEN
     Indication: BREAST CANCER
  8. CAPECITABINE. [Suspect]
     Active Substance: CAPECITABINE
     Indication: CHRONIC MYELOID LEUKAEMIA
     Dosage: UNK
     Route: 065
     Dates: start: 201707
  9. LETROZOLE. [Suspect]
     Active Substance: LETROZOLE
     Indication: HORMONE THERAPY
  10. PACLITAXEL. [Interacting]
     Active Substance: PACLITAXEL
     Dosage: UNK,1,1 WEEK
     Route: 065
     Dates: start: 201705

REACTIONS (15)
  - Drug ineffective [Unknown]
  - Anaemia [Fatal]
  - Drug interaction [Fatal]
  - Breast cancer [Unknown]
  - Breast cancer metastatic [Fatal]
  - Disease progression [Fatal]
  - Death [Fatal]
  - Polyneuropathy [Fatal]
  - Second primary malignancy [Recovering/Resolving]
  - Malignant neoplasm progression [Unknown]
  - Off label use [Unknown]
  - Thrombocytopenia [Fatal]
  - Therapy partial responder [Unknown]
  - Chronic myeloid leukaemia [Fatal]
  - Product use in unapproved indication [Fatal]

NARRATIVE: CASE EVENT DATE: 2016
